FAERS Safety Report 5274421-1 (Version None)
Quarter: 2007Q1

REPORT INFORMATION
  Report Type: 
  Country: None (occurrence: None)
  Receive Date: 20070323
  Receipt Date: 20070315
  Transmission Date: 20070707
  Serious: Yes (Life-Threatening, Hospitalization)
  Sender: FDA-Public Use
  Company Number: DE-PFIZER INC-2007015217

PATIENT
  Sex: Female

DRUGS (3)
  1. CEFPODOXIME PROXETIL TABLET [Suspect]
     Indication: INFLUENZA
     Route: 048
     Dates: start: 20070120, end: 20070123
  2. ACETYLCYSTEINE [Concomitant]
     Indication: HAEMOPHILUS INFECTION
     Route: 048
     Dates: start: 20070120, end: 20070123
  3. NOSCAPINE [Concomitant]
     Indication: HAEMOPHILUS INFECTION
     Route: 048
     Dates: start: 20070120, end: 20070123

REACTIONS (1)
  - HEPATIC FAILURE [None]
